FAERS Safety Report 5309890-1 (Version None)
Quarter: 2007Q2

REPORT INFORMATION
  Report Type: 
  Country: None (occurrence: None)
  Receive Date: 20070427
  Receipt Date: 20070420
  Transmission Date: 20071010
  Serious: Yes (Other)
  Sender: FDA-Public Use
  Company Number: CA-ROCHE-494285

PATIENT
  Age: 28 Year
  Sex: Female

DRUGS (2)
  1. ACCUTANE [Suspect]
     Indication: DRUG USE FOR UNKNOWN INDICATION
     Route: 048
     Dates: start: 20070320, end: 20070404
  2. TRI-CYCLEN [Concomitant]
     Dosage: TOOK IRREGULARLY BETWEEN STATED DATES.
     Route: 048
     Dates: start: 20070206, end: 20070220

REACTIONS (2)
  - NO ADVERSE EFFECT [None]
  - PREGNANCY [None]
